FAERS Safety Report 4438991-5 (Version None)
Quarter: 2004Q3

REPORT INFORMATION
  Report Type: 
  Country: None (occurrence: None)
  Receive Date: 20040830
  Receipt Date: 20040820
  Transmission Date: 20050211
  Serious: Yes (Hospitalization)
  Sender: FDA-Public Use
  Company Number: 2004229938IT

PATIENT
  Age: 56 Year
  Sex: Female

DRUGS (5)
  1. CLINDAMYCIN HCL [Suspect]
     Indication: OSTEOMYELITIS
     Dosage: 1800 MG, DAILY, IV
     Route: 042
     Dates: start: 20040809, end: 20040817
  2. ZYVOX [Suspect]
     Indication: OSTEOMYELITIS
     Dosage: 1200 MG , DAILY, ORAL
     Route: 048
     Dates: start: 20040819
  3. PANTOPRAZOLE [Concomitant]
  4. DIPHENYLHYDANTOIN [Concomitant]
  5. NADROPARIN CALCIUM(HEPARIN-FRACTION, CALCION SALT) [Concomitant]

REACTIONS (1)
  - DERMATITIS ALLERGIC [None]
